FAERS Safety Report 18006750 (Version 1)
Quarter: 2020Q3

REPORT INFORMATION
  Report Type: Spontaneous
  Country: US (occurrence: US)
  Receive Date: 20200710
  Receipt Date: 20200710
  Transmission Date: 20201103
  Serious: No
  Sender: FDA-Public Use
  Company Number: US-MYLANLABS-2020M1060735

PATIENT
  Sex: Female
  Weight: 124 kg

DRUGS (1)
  1. METFORMIN [Suspect]
     Active Substance: METFORMIN HYDROCHLORIDE
     Indication: TYPE 2 DIABETES MELLITUS
     Dosage: NOT DISCLOSED
     Dates: start: 2014, end: 2017

REACTIONS (7)
  - Speech disorder [Recovered/Resolved]
  - Product dose omission issue [Not Recovered/Not Resolved]
  - Blood glucose increased [Not Recovered/Not Resolved]
  - Ulcer [Recovered/Resolved]
  - Vomiting [Recovered/Resolved]
  - Discontinued product administered [Not Recovered/Not Resolved]
  - Memory impairment [Recovered/Resolved]
